FAERS Safety Report 4360604-1 (Version None)
Quarter: 2004Q2

REPORT INFORMATION
  Report Type: 
  Country: None (occurrence: None)
  Receive Date: 20040519
  Receipt Date: 20040419
  Transmission Date: 20050107
  Serious: Yes (Death, Hospitalization, Other)
  Sender: FDA-Public Use
  Company Number: US-BRISTOL-MYERS SQUIBB COMPANY-12564605

PATIENT
  Age: 69 Year
  Sex: Male
  Weight: 90 kg

DRUGS (17)
  1. ERBITUX [Suspect]
     Indication: COLON CANCER METASTATIC
     Dosage: INITIAL INFUSION.
     Route: 042
     Dates: start: 20040416, end: 20040416
  2. BENADRYL [Concomitant]
     Indication: PREMEDICATION
     Route: 041
     Dates: start: 20040416, end: 20040416
  3. IRON (FERROUS SULFATE) [Concomitant]
     Route: 048
  4. TOPROL-XL [Concomitant]
  5. LIPITOR [Concomitant]
  6. HYDRALAZINE HCL [Concomitant]
  7. LASIX [Concomitant]
  8. DIGITEK [Concomitant]
  9. ASPIRIN [Concomitant]
     Dosage: 1 BABY ASA EVERY DAY
  10. ZANTAC [Concomitant]
  11. KLOR-CON [Concomitant]
  12. COUMADIN [Concomitant]
  13. COLACE [Concomitant]
  14. NITROGLYCERIN [Concomitant]
  15. XANAX [Concomitant]
  16. TYLENOL [Concomitant]
  17. LORTAB [Concomitant]

REACTIONS (4)
  - CEREBROVASCULAR ACCIDENT [None]
  - COLD SWEAT [None]
  - DEPRESSED LEVEL OF CONSCIOUSNESS [None]
  - HYPOTENSION [None]
